FAERS Safety Report 18446068 (Version 3)
Quarter: 2020Q4

REPORT INFORMATION
  Report Type: Report from Study
  Country: GB (occurrence: GB)
  Receive Date: 20201030
  Receipt Date: 20201209
  Transmission Date: 20210114
  Serious: Yes (Other)
  Sender: FDA-Public Use
  Company Number: GB-SHIRE-GB202022927AA

PATIENT
  Age: 68 Year
  Sex: Female

DRUGS (2)
  1. ICATIBANT [Suspect]
     Active Substance: ICATIBANT ACETATE
     Indication: HEREDITARY ANGIOEDEMA
     Dosage: 30 MILLIGRAM, AS REQUIRED
     Route: 058
  2. ICATIBANT [Suspect]
     Active Substance: ICATIBANT ACETATE
     Indication: HEREDITARY ANGIOEDEMA
     Dosage: 30 MILLIGRAM, AS REQUIRED
     Route: 058

REACTIONS (20)
  - Anxiety [Unknown]
  - Stress [Unknown]
  - Intestinal obstruction [Unknown]
  - Expired product administered [Unknown]
  - Post-traumatic stress disorder [Unknown]
  - Neoplasm malignant [Unknown]
  - Pain [Unknown]
  - Ill-defined disorder [Unknown]
  - Insomnia [Unknown]
  - Hereditary angioedema [Unknown]
  - Condition aggravated [Unknown]
  - Oesophageal obstruction [Unknown]
  - Splenomegaly [Unknown]
  - Dyspnoea [Unknown]
  - Malaise [Unknown]
  - Inflammation [Unknown]
  - Product availability issue [Unknown]
  - Dysstasia [Unknown]
  - Dysphagia [Unknown]
  - Partner stress [Unknown]
